FAERS Safety Report 9807419 (Version 1)
Quarter: 2014Q1

REPORT INFORMATION
  Report Type: Spontaneous
  Country: US (occurrence: US)
  Receive Date: 20140110
  Receipt Date: 20140110
  Transmission Date: 20141002
  Serious: No
  Sender: FDA-Public Use
  Company Number: US-TARO-2013P1019548

PATIENT
  Age: 92 Year
  Sex: Female
  Weight: 74.84 kg

DRUGS (2)
  1. TRIAMCINOLONE ACETONIDE CREAM WITH EMOLLIENT CREAM [Suspect]
     Route: 061
     Dates: start: 20130615
  2. TRIPLE ANTIBIOTIC OINTMENT [Suspect]
     Route: 061
     Dates: start: 201309

REACTIONS (2)
  - Drug ineffective [Not Recovered/Not Resolved]
  - Erythema [Not Recovered/Not Resolved]
